FAERS Safety Report 5580398-1 (Version None)
Quarter: 2007Q4

REPORT INFORMATION
  Report Type: 
  Country: None (occurrence: None)
  Receive Date: 20071226
  Receipt Date: 20071211
  Transmission Date: 20080405
  Serious: Yes (Other)
  Sender: FDA-Public Use
  Company Number: 2007EN000296

PATIENT
  Sex: Male

DRUGS (1)
  1. OPANA ER [Suspect]
     Dosage: INH
     Route: 055
     Dates: start: 20071201

REACTIONS (2)
  - INTENTIONAL DRUG MISUSE [None]
  - VOMITING [None]
